FAERS Safety Report 20773690 (Version 3)
Quarter: 2022Q2

REPORT INFORMATION
  Report Type: Spontaneous
  Country: IR (occurrence: IR)
  Receive Date: 20220502
  Receipt Date: 20220506
  Transmission Date: 20220721
  Serious: Yes (Hospitalization, Other)
  Sender: FDA-Public Use
  Company Number: IR-MLMSERVICE-20220415-3508221-1

PATIENT
  Age: 33 Year
  Sex: Male

DRUGS (3)
  1. METHYLPREDNISOLONE SODIUM SUCCINATE [Suspect]
     Active Substance: METHYLPREDNISOLONE SODIUM SUCCINATE
     Indication: COVID-19
     Dosage: HIGH-DOSE INFUSION
  2. TOCILIZUMAB [Suspect]
     Active Substance: TOCILIZUMAB
     Indication: COVID-19
     Dosage: 2 DF
  3. REMDESIVIR [Concomitant]
     Active Substance: REMDESIVIR
     Indication: COVID-19
     Dosage: UNK

REACTIONS (1)
  - Cytomegalovirus gastritis [Recovered/Resolved]
